FAERS Safety Report 6413376-0 (Version None)
Quarter: 2009Q4

REPORT INFORMATION
  Report Type: 
  Country: None (occurrence: None)
  Receive Date: 20091026
  Receipt Date: 20091021
  Transmission Date: 20100525
  Serious: Yes (Hospitalization, Other)
  Sender: FDA-Public Use
  Company Number: HU-BRISTOL-MYERS SQUIBB COMPANY-14779961

PATIENT
  Age: 61 Year
  Sex: Male
  Weight: 85 kg

DRUGS (9)
  1. CETUXIMAB [Suspect]
     Indication: HEAD AND NECK CANCER
     Dosage: RECENT INFUSION ON 07-SEP-2009
     Route: 042
     Dates: start: 20090810
  2. CISPLATIN [Suspect]
     Indication: HEAD AND NECK CANCER
     Route: 042
     Dates: start: 20090810
  3. DOCETAXEL [Suspect]
     Indication: HEAD AND NECK CANCER
     Dosage: RECENT INFUSION ON 31-AUG-2009
     Route: 042
     Dates: start: 20090810
  4. FLUOROURACIL [Suspect]
     Indication: HEAD AND NECK CANCER
     Dosage: RECENT INFUSIONS ON 31-AUG-2009
     Route: 042
     Dates: start: 20090811
  5. ACETYLSALICYLIC ACID [Concomitant]
     Indication: ANTICOAGULANT THERAPY
     Route: 048
     Dates: start: 20090722
  6. MEPROBAMATE [Concomitant]
     Indication: ANXIETY
     Route: 048
     Dates: start: 20070903, end: 20090901
  7. CIPROFLOXACIN HYDROCHLORIDE [Concomitant]
     Indication: PROPHYLAXIS
     Route: 048
  8. PERINDOPRIL [Concomitant]
     Indication: HYPERTENSION
     Dosage: 1 DOSAGE FORM = 4/1.25 UNIT NOT SPECIFIED
     Route: 048
     Dates: start: 20090722
  9. INDAPAMIDE [Concomitant]
     Indication: HYPERTENSION
     Dosage: 1 DOSAGE FORM = 4/1.25 UNIT NOT SPECIFIED
     Route: 048
     Dates: start: 20090722

REACTIONS (4)
  - DIARRHOEA [None]
  - HYPOTENSION [None]
  - INFUSION RELATED REACTION [None]
  - LOSS OF CONSCIOUSNESS [None]
